FAERS Safety Report 8521711-2 (Version None)
Quarter: 2012Q3

REPORT INFORMATION
  Report Type: 
  Country: None (occurrence: None)
  Receive Date: 20120719
  Receipt Date: 20120717
  Transmission Date: 20120928
  Serious: Yes (Death, Other)
  Sender: FDA-Public Use
  Company Number: PHHY2012SI058557

PATIENT
  Age: 78 Year
  Sex: Male

DRUGS (10)
  1. RASILEZ [Concomitant]
  2. LANITOP [Concomitant]
  3. LASIX [Concomitant]
  4. WARFARIN SODIUM [Concomitant]
  5. KAMIREN XL [Concomitant]
  6. EXFORGE [Suspect]
     Indication: HYPERTENSION
     Dosage: 1 DF (160 MG VALS AND 5 MG AMLO), QD
     Route: 048
     Dates: start: 20100701
  7. GLUCOBAY [Concomitant]
     Dosage: 100 MG, TID
  8. NOVOLOG MIX 70/30 [Concomitant]
  9. EXFORGE [Suspect]
     Dosage: 1 DF(160 MG VALS AND 5 MG AMLO), BID
     Route: 048
     Dates: start: 20101201
  10. ATORVASTATIN [Concomitant]
     Dosage: 40 MG, UNK

REACTIONS (3)
  - PNEUMONIA [None]
  - DEATH [None]
  - GANGRENE [None]
